FAERS Safety Report 10174697 (Version 1)
Quarter: 2014Q2

REPORT INFORMATION
  Report Type: Spontaneous
  Country: AU (occurrence: AU)
  Receive Date: 20140515
  Receipt Date: 20140515
  Transmission Date: 20141212
  Serious: Yes (Other)
  Sender: FDA-Public Use
  Company Number: AU-BAYER-2014-067994

PATIENT
  Sex: Female

DRUGS (2)
  1. ACETYLSALICYLIC ACID (} 100 MG) [Suspect]
     Indication: ANTIPHOSPHOLIPID SYNDROME
     Dosage: DAILY DOSE 100 MG
  2. ENOXAPARIN [Concomitant]
     Indication: ANTIPHOSPHOLIPID SYNDROME
     Dosage: DAILY DOSE 40 MG

REACTIONS (3)
  - Exposure during pregnancy [None]
  - Off label use [None]
  - Foetal growth restriction [None]
